FAERS Safety Report 21818561 (Version 1)
Quarter: 2023Q1

REPORT INFORMATION
  Report Type: Spontaneous
  Country: IT (occurrence: None)
  Receive Date: 20230104
  Receipt Date: 20230104
  Transmission Date: 20230418
  Serious: Yes (Hospitalization)
  Sender: FDA-Public Use
  Company Number: 2022A417414

PATIENT
  Age: 79 Year
  Sex: Male

DRUGS (12)
  1. TICAGRELOR [Suspect]
     Active Substance: TICAGRELOR
     Indication: Myocardial ischaemia
     Route: 048
     Dates: start: 202201, end: 20220909
  2. EDOXABAN TOSYLATE [Suspect]
     Active Substance: EDOXABAN TOSYLATE
     Indication: Atrial fibrillation
     Dosage: 60.0MG UNKNOWN
     Route: 065
     Dates: start: 202201, end: 20220909
  3. TACHIPIRINA [Concomitant]
     Active Substance: ACETAMINOPHEN
     Dosage: TACHIPIRINA AB
  4. BISOPROLOL FUMARATE [Concomitant]
     Active Substance: BISOPROLOL FUMARATE
     Dosage: BISOPROLOLO 2.5MG, 1CP ORE 8
  5. LASIX [Concomitant]
     Active Substance: FUROSEMIDE
     Dosage: LASIX 25MG, 1CP ORE 8
  6. ATORVASTATIN [Concomitant]
     Active Substance: ATORVASTATIN
     Dosage: ATORVASTATINA 40MG, 1CP ORE 18
  7. METFORMIN [Concomitant]
     Active Substance: METFORMIN HYDROCHLORIDE
     Dosage: METFORMINA 500MG RP, 1CP ORE 8 + 1CP ORE 18
  8. PANTOPRAZOLE SODIUM [Concomitant]
     Active Substance: PANTOPRAZOLE SODIUM
     Dosage: PANTOPRAZOLO 40MG, 1CP ORE 8
  9. TELMISARTAN [Concomitant]
     Active Substance: TELMISARTAN
     Dosage: TELMISARTAN 80MG, 1/2CP ORE 8
  10. CYMBALTA [Concomitant]
     Active Substance: DULOXETINE HYDROCHLORIDE
     Dosage: CYMBALTA 60MG, 1CP ORE 8
  11. LORAZEPAM [Concomitant]
     Active Substance: LORAZEPAM
     Dosage: TAVOR, 15GTT ORE 20
  12. DOXAZOSINA MESILATO [Concomitant]
     Dosage: DOXAZOSINA 4MG, 1CP ORE 18

REACTIONS (3)
  - Anaemia [Recovering/Resolving]
  - Melaena [Recovering/Resolving]
  - Haematuria [Recovered/Resolved]

NARRATIVE: CASE EVENT DATE: 20220909
